FAERS Safety Report 6773504-4 (Version None)
Quarter: 2010Q2

REPORT INFORMATION
  Report Type: 
  Country: None (occurrence: None)
  Receive Date: 20100616
  Receipt Date: 20100302
  Transmission Date: 20101027
  Serious: No
  Sender: FDA-Public Use
  Company Number: US-ABBOTT-10P-163-0630146-00

PATIENT
  Sex: Male
  Weight: 99.88 kg

DRUGS (1)
  1. TRILIPIX [Suspect]
     Indication: BLOOD CHOLESTEROL INCREASED
     Dates: start: 20100201

REACTIONS (3)
  - BACK PAIN [None]
  - CHROMATURIA [None]
  - URINE OUTPUT DECREASED [None]
